FAERS Safety Report 8650335 (Version 2)
Quarter: 2012Q4

REPORT INFORMATION
  Report Type: 
  Country: FR (occurrence: FR)
  Receive Date: 20120705
  Receipt Date: 20121011
  Transmission Date: 20130627
  Serious: Yes (Hospitalization)
  Sender: FDA-Public Use
  Company Number: FR-B.I. PHARMACEUTICALS,INC./RIDGEFIELD-2012-FF-00829FF

PATIENT
  Age: 72 Year
  Sex: Male

DRUGS (5)
  1. PRADAXA [Suspect]
     Indication: ARRHYTHMIA
     Dosage: 220 mg
     Route: 048
     Dates: start: 20120602, end: 20120608
  2. LASILIX [Concomitant]
  3. COZAAR [Concomitant]
  4. CARDENSIEL [Concomitant]
  5. ZYLORIC [Concomitant]

REACTIONS (1)
  - Hepatic encephalopathy [Not Recovered/Not Resolved]
